FAERS Safety Report 9072082 (Version 1)
Quarter: 2013Q1

REPORT INFORMATION
  Report Type: Report from Study
  Country: US (occurrence: US)
  Receive Date: 20130129
  Receipt Date: 20130129
  Transmission Date: 20140127
  Serious: No
  Sender: FDA-Public Use
  Company Number: US-ABBOTT-12P-163-0922426-00

PATIENT
  Age: 29 Year
  Sex: Female

DRUGS (14)
  1. HUMIRA 40 MG/0.8 ML PEN [Suspect]
     Indication: CROHN^S DISEASE
     Dosage: 160 MG LOADING DOSE
     Dates: start: 20120404, end: 20120404
  2. HUMIRA 40 MG/0.8 ML PEN [Suspect]
  3. PREDNISONE [Concomitant]
     Indication: PRODUCT USED FOR UNKNOWN INDICATION
  4. KAPIDEX [Concomitant]
     Indication: PRODUCT USED FOR UNKNOWN INDICATION
  5. ZANTAC [Concomitant]
     Indication: PRODUCT USED FOR UNKNOWN INDICATION
  6. IMURAN [Concomitant]
     Indication: PRODUCT USED FOR UNKNOWN INDICATION
  7. VITAMIN D [Concomitant]
     Indication: PRODUCT USED FOR UNKNOWN INDICATION
  8. VITAMIN B12 [Concomitant]
     Indication: PRODUCT USED FOR UNKNOWN INDICATION
  9. TOPAMAX [Concomitant]
     Indication: MIGRAINE
  10. LAMICTAL [Concomitant]
     Indication: BIPOLAR DISORDER
     Dosage: 1/2 TAB EVERY MORNING AND 1 TAB AT BEDTIME
  11. PROVENTIL [Concomitant]
     Indication: SEASONAL ALLERGY
  12. NASONEX [Concomitant]
     Indication: SEASONAL ALLERGY
  13. ATIVAN [Concomitant]
     Indication: ANXIETY
  14. LUNESTA [Concomitant]
     Indication: INSOMNIA

REACTIONS (1)
  - Injection site pain [Recovered/Resolved]
